FAERS Safety Report 18404240 (Version 1)
Quarter: 2020Q4

REPORT INFORMATION
  Report Type: Spontaneous
  Country: US (occurrence: US)
  Receive Date: 20201020
  Receipt Date: 20201020
  Transmission Date: 20210114
  Serious: Yes (Life-Threatening, Other)
  Sender: FDA-Public Use
  Company Number: None

PATIENT
  Age: 61 Year
  Sex: Male
  Weight: 63.05 kg

DRUGS (5)
  1. BENADRYL CAP [Concomitant]
  2. ONDANSETRON TAB [Concomitant]
  3. LUTETIUM LU 177 DOTATATE [Suspect]
     Active Substance: LUTETIUM OXODOTREOTIDE LU-177
     Indication: NEUROENDOCRINE TUMOUR
     Route: 042
     Dates: start: 20200902, end: 20200902
  4. AMINO ACIDS (ARGININE 25G, LYSINE 25G) [Suspect]
     Active Substance: ARGININE\LYSINE
     Route: 042
     Dates: start: 20200902, end: 20200902
  5. DIPHENHYDRAMINE. [Concomitant]
     Active Substance: DIPHENHYDRAMINE

REACTIONS (3)
  - Generalised tonic-clonic seizure [None]
  - Cardiac arrest [None]
  - Respiratory arrest [None]

NARRATIVE: CASE EVENT DATE: 20200902
